FAERS Safety Report 11803896 (Version 1)
Quarter: 2015Q4

REPORT INFORMATION
  Report Type: Report from Study
  Country: BR (occurrence: BR)
  Receive Date: 20151204
  Receipt Date: 20151204
  Transmission Date: 20160305
  Serious: Yes (Hospitalization)
  Sender: FDA-Public Use
  Company Number: PHHY2015BR153132

PATIENT
  Age: 11 Year
  Sex: Male
  Weight: 33 kg

DRUGS (2)
  1. DESFERAL [Suspect]
     Active Substance: DEFEROXAMINE MESYLATE
     Indication: THALASSAEMIA
     Route: 065
  2. EXJADE [Suspect]
     Active Substance: DEFERASIROX
     Indication: THALASSAEMIA
     Dosage: 2 DF, UNK
     Route: 065

REACTIONS (4)
  - Serum ferritin increased [Unknown]
  - Dengue fever [Unknown]
  - Liver injury [Unknown]
  - Hepatic siderosis [Unknown]

NARRATIVE: CASE EVENT DATE: 201504
